FAERS Safety Report 6201445-X (Version None)
Quarter: 2009Q2

REPORT INFORMATION
  Report Type: 
  Country: None (occurrence: None)
  Receive Date: 20090519
  Receipt Date: 20090504
  Transmission Date: 20091009
  Serious: Yes (Hospitalization)
  Sender: FDA-Public Use
  Company Number: 2009S1007679

PATIENT
  Age: 66 Year
  Sex: Male

DRUGS (4)
  1. FUROSEMIDE [Suspect]
     Dosage: 40 MG;3 TIMES A DAY; ORAL
     Route: 048
  2. METOLAZONE [Suspect]
     Dosage: 2.5 MG;DAILY;ORAL
     Route: 048
  3. SPIRONOLACTONE [Suspect]
     Dosage: 12.5 MG;PAILY;ORAL
     Route: 048
  4. RAMIPRIL [Suspect]
     Dosage: 7.5 MG;DAILY;ORAL
     Route: 048
     Dates: start: 20050301

REACTIONS (5)
  - AZOTAEMIA [None]
  - BLOOD CREATININE INCREASED [None]
  - BLOOD SODIUM DECREASED [None]
  - DEHYDRATION [None]
  - HYPOTENSION [None]
